FAERS Safety Report 13525273 (Version 1)
Quarter: 2017Q2

REPORT INFORMATION
  Report Type: Spontaneous
  Country: US (occurrence: US)
  Receive Date: 20170508
  Receipt Date: 20170508
  Transmission Date: 20170830
  Serious: No
  Sender: FDA-Public Use
  Company Number: US-ROCHE-1172704

PATIENT
  Age: 79 Year
  Sex: Male

DRUGS (4)
  1. BEVACIZUMAB [Suspect]
     Active Substance: BEVACIZUMAB
     Indication: OFF LABEL USE
  2. BEVACIZUMAB [Suspect]
     Active Substance: BEVACIZUMAB
     Indication: OCULAR NEOPLASM
     Route: 050
  3. MITOMYCIN. [Concomitant]
     Active Substance: MITOMYCIN
     Route: 061
  4. INTERFERON ALFA-2B [Concomitant]
     Active Substance: INTERFERON ALFA-2B
     Dosage: 1 MILLION UNITS/ML 4 TIMES A DAY
     Route: 047

REACTIONS (1)
  - Drug ineffective [Unknown]
